FAERS Safety Report 13584442 (Version 2)
Quarter: 2019Q2

REPORT INFORMATION
  Report Type: Spontaneous
  Country: GB (occurrence: GB)
  Receive Date: 20170526
  Receipt Date: 20190626
  Transmission Date: 20190711
  Serious: Yes (Hospitalization, Other)
  Sender: FDA-Public Use
  Company Number: GB-ACCORD-051746

PATIENT
  Age: 62 Year
  Sex: Male
  Weight: 76.96 kg

DRUGS (2)
  1. AMLODIPINE [Suspect]
     Active Substance: AMLODIPINE BESYLATE
     Indication: HYPERTENSION
     Route: 048
     Dates: start: 20170504
  2. RANITIDINE. [Concomitant]
     Active Substance: RANITIDINE
     Indication: GASTROOESOPHAGEAL REFLUX DISEASE
     Dosage: ALSO TAB 300 MG FOR OESOPHAGEAL ACID REFLUX
     Route: 048
     Dates: start: 20170504

REACTIONS (1)
  - Agranulocytosis [Recovering/Resolving]
